FAERS Safety Report 4861296-5 (Version None)
Quarter: 2005Q4

REPORT INFORMATION
  Report Type: 
  Country: None (occurrence: None)
  Receive Date: 20051216
  Receipt Date: 20051205
  Transmission Date: 20060501
  Serious: Yes (Other)
  Sender: FDA-Public Use
  Company Number: 2005165044

PATIENT
  Age: 51 Year
  Sex: Female
  Weight: 77.1115 kg

DRUGS (7)
  1. NEURONTIN [Suspect]
     Indication: CONVULSION
     Dosage: UNKNOWN
     Route: 065
  2. LYRICA [Suspect]
     Indication: CONVULSION
     Dosage: 200 MG (100 MG, 2 IN 1 D), UNKNOWN
     Route: 065
     Dates: start: 20050101
  3. CYMBALTA [Suspect]
     Indication: ILL-DEFINED DISORDER
     Dosage: UNKNOWN
     Route: 065
     Dates: end: 20050101
  4. TOPROL-XL [Suspect]
     Indication: HYPERTENSION
     Dosage: UNKNOWN
     Route: 065
  5. ALL OTHER NON-THERAPEUTIC PRODUCTS (ALL OTHER NON-THERAPEUTIC PRODUCTS [Suspect]
     Indication: ILL-DEFINED DISORDER
     Dosage: UNKNOWN
     Route: 065
  6. CLONAZEPAM [Concomitant]
  7. CHLOR-TRIMETON [Concomitant]

REACTIONS (9)
  - CONVULSION [None]
  - DISTURBANCE IN ATTENTION [None]
  - DIZZINESS [None]
  - DYSPEPSIA [None]
  - FATIGUE [None]
  - FEELING DRUNK [None]
  - IMPAIRED DRIVING ABILITY [None]
  - MOVEMENT DISORDER [None]
  - VISION BLURRED [None]
